FAERS Safety Report 16289173 (Version 1)
Quarter: 2019Q2

REPORT INFORMATION
  Report Type: Spontaneous
  Country: US (occurrence: US)
  Receive Date: 20190509
  Receipt Date: 20190509
  Transmission Date: 20190711
  Serious: No
  Sender: FDA-Public Use
  Company Number: US-JNJFOC-20190440313

PATIENT
  Sex: Male
  Weight: 79.38 kg

DRUGS (2)
  1. MOTRIN [Suspect]
     Active Substance: IBUPROFEN
     Indication: BACK PAIN
     Dosage: EACH TIME WHENEVER NEEDED
     Route: 048
     Dates: end: 20190420
  2. MOTRIN [Suspect]
     Active Substance: IBUPROFEN
     Route: 048

REACTIONS (1)
  - Skin discolouration [Not Recovered/Not Resolved]
